FAERS Safety Report 7826141-4 (Version None)
Quarter: 2011Q4

REPORT INFORMATION
  Report Type: 
  Country: None (occurrence: None)
  Receive Date: 20111019
  Receipt Date: 20111010
  Transmission Date: 20120403
  Serious: Yes (Other)
  Sender: FDA-Public Use
  Company Number: US-ASTRAZENECA-2011SE08556

PATIENT
  Age: 82 Year
  Sex: Female

DRUGS (4)
  1. PREVACID [Concomitant]
  2. TOPROL-XL [Suspect]
     Route: 048
  3. LISINOPRIL [Suspect]
     Route: 048
  4. BAYER ASP [Concomitant]

REACTIONS (7)
  - BONE PAIN [None]
  - DRUG INTOLERANCE [None]
  - DISCOMFORT [None]
  - SPINAL DEFORMITY [None]
  - MYOCARDIAL INFARCTION [None]
  - MUSCULAR WEAKNESS [None]
  - MUSCLE SPASMS [None]
